FAERS Safety Report 4290177-3 (Version None)
Quarter: 2004Q1

REPORT INFORMATION
  Report Type: 
  Country: None (occurrence: None)
  Receive Date: 20040206
  Receipt Date: 20040123
  Transmission Date: 20041129
  Serious: Yes (Death, Life-Threatening, Hospitalization)
  Sender: FDA-Public Use
  Company Number: KDL045385

PATIENT
  Age: 70 Year
  Sex: Female

DRUGS (11)
  1. IL-IRA [Suspect]
     Indication: RHEUMATOID ARTHRITIS
     Dosage: 100 MG, DAILY, SC
     Route: 058
     Dates: start: 20010531, end: 20030422
  2. FOLIC ACID [Concomitant]
  3. AMIODARONE HCL [Concomitant]
  4. BUDESONIDE [Concomitant]
  5. ALBUEROL SULFATE [Concomitant]
  6. LORATADINE [Concomitant]
  7. FUROSEMIDE [Concomitant]
  8. POTASSIUM CHLORIDE [Concomitant]
  9. FEXOFENADINE HYDROCHLORIDE [Concomitant]
  10. CELECOXIB [Concomitant]
  11. IBUPROFEN [Concomitant]

REACTIONS (8)
  - CARDIAC ARREST [None]
  - EMPYEMA [None]
  - GENERAL PHYSICAL HEALTH DETERIORATION [None]
  - LUNG SQUAMOUS CELL CARCINOMA STAGE UNSPECIFIED [None]
  - PLEURAL EFFUSION [None]
  - PLEURITIC PAIN [None]
  - PNEUMOTHORAX [None]
  - STAPHYLOCOCCAL INFECTION [None]
